FAERS Safety Report 8285708-2 (Version None)
Quarter: 2012Q2

REPORT INFORMATION
  Report Type: 
  Country: None (occurrence: None)
  Receive Date: 20120413
  Receipt Date: 20120405
  Transmission Date: 20120825
  Serious: Yes (Other)
  Sender: FDA-Public Use
  Company Number: US-ROCHE-1059406

PATIENT

DRUGS (4)
  1. ACCUTANE [Suspect]
     Indication: ACNE
     Dates: start: 20010101
  2. ACCUTANE [Suspect]
     Dates: start: 20060101
  3. SOTRET [Suspect]
     Dates: start: 20060101
  4. SOTRET [Suspect]
     Indication: ACNE
     Dates: start: 20010101

REACTIONS (5)
  - IRRITABLE BOWEL SYNDROME [None]
  - CROHN'S DISEASE [None]
  - COLITIS ULCERATIVE [None]
  - ANXIETY [None]
  - INFLAMMATORY BOWEL DISEASE [None]
